FAERS Safety Report 11615548 (Version 1)
Quarter: 2015Q4

REPORT INFORMATION
  Report Type: Report from Study
  Country: US (occurrence: US)
  Receive Date: 20151009
  Receipt Date: 20151009
  Transmission Date: 20160304
  Serious: Yes (Death)
  Sender: FDA-Public Use
  Company Number: US-BIOGENIDEC-2015BI131334

PATIENT
  Age: 52 Year
  Sex: Male

DRUGS (1)
  1. TYSABRI [Suspect]
     Active Substance: NATALIZUMAB
     Indication: MULTIPLE SCLEROSIS
     Route: 042
     Dates: start: 20150717, end: 20150814

REACTIONS (3)
  - Central nervous system lymphoma [Unknown]
  - Death [Fatal]
  - Cerebral sarcoidosis [Unknown]

NARRATIVE: CASE EVENT DATE: 201509
